FAERS Safety Report 6940555-6 (Version None)
Quarter: 2010Q3

REPORT INFORMATION
  Report Type: 
  Country: None (occurrence: None)
  Receive Date: 20100825
  Receipt Date: 20100725
  Transmission Date: 20110219
  Serious: No
  Sender: FDA-Public Use
  Company Number: US-BAYER-201018889BCC

PATIENT
  Age: 44 Year
  Sex: Female
  Weight: 59 kg

DRUGS (2)
  1. ALEVE (CAPLET) [Suspect]
     Indication: TOOTHACHE
     Dosage: TOTAL DAILY DOSE: 3960 MG  UNIT DOSE: 220 MG
     Route: 048
     Dates: start: 20100725
  2. VYVANSE [Concomitant]
     Route: 065

REACTIONS (4)
  - FATIGUE [None]
  - FEELING HOT [None]
  - PRESYNCOPE [None]
  - TOOTHACHE [None]
